FAERS Safety Report 18567517 (Version 3)
Quarter: 2020Q4

REPORT INFORMATION
  Report Type: Report from Study
  Country: US (occurrence: US)
  Receive Date: 20201201
  Receipt Date: 20201227
  Transmission Date: 20210114
  Serious: Yes (Hospitalization)
  Sender: FDA-Public Use
  Company Number: US-BAUSCH-BL-2020-035159

PATIENT
  Age: 71 Year
  Sex: Female
  Weight: 72.19 kg

DRUGS (2)
  1. XIFAXAN [Suspect]
     Active Substance: RIFAXIMIN
     Route: 048
     Dates: start: 20201124
  2. XIFAXAN [Suspect]
     Active Substance: RIFAXIMIN
     Indication: HEPATIC ENZYME INCREASED
     Route: 048
     Dates: end: 202011

REACTIONS (5)
  - Therapy interrupted [Unknown]
  - Hepatic enzyme increased [Recovered/Resolved]
  - Blood glucose increased [Unknown]
  - Renin increased [Unknown]
  - Gait inability [Recovered/Resolved]

NARRATIVE: CASE EVENT DATE: 2020
